FAERS Safety Report 20807738 (Version 1)
Quarter: 2022Q2

REPORT INFORMATION
  Report Type: Spontaneous
  Country: US (occurrence: US)
  Receive Date: 20220510
  Receipt Date: 20220510
  Transmission Date: 20220721
  Serious: Yes (Other)
  Sender: FDA-Public Use
  Company Number: US-SANOFI-01074523

PATIENT
  Age: 64 Year
  Sex: Female

DRUGS (2)
  1. DUPIXENT [Suspect]
     Active Substance: DUPILUMAB
     Dosage: UNK, 1X
     Dates: start: 20210219, end: 20210219
  2. DUPIXENT [Suspect]
     Active Substance: DUPILUMAB
     Dosage: 300 MG, QOW
     Route: 058
     Dates: end: 20220331

REACTIONS (6)
  - Eye haemorrhage [Not Recovered/Not Resolved]
  - Eye infection [Recovered/Resolved]
  - Ocular discomfort [Recovered/Resolved]
  - Eye swelling [Unknown]
  - Eye pain [Not Recovered/Not Resolved]
  - Eye disorder [Unknown]
